FAERS Safety Report 25868493 (Version 2)
Quarter: 2025Q4

REPORT INFORMATION
  Report Type: Spontaneous
  Country: IN (occurrence: IN)
  Receive Date: 20251001
  Receipt Date: 20251014
  Transmission Date: 20260117
  Serious: Yes (Hospitalization)
  Sender: CIPLA
  Company Number: IN-MLMSERVICE-20250915-PI645047-00306-1

PATIENT

DRUGS (7)
  1. FLUCONAZOLE [Interacting]
     Active Substance: FLUCONAZOLE
     Indication: Oral candidiasis
     Dosage: 100 MILLIGRAM, QD
     Route: 065
     Dates: start: 20250506, end: 20250520
  2. ATAZANAVIR\RITONAVIR [Interacting]
     Active Substance: ATAZANAVIR\RITONAVIR
     Indication: Antiretroviral therapy
     Dosage: UNK
     Route: 065
     Dates: start: 20250421, end: 202505
  3. ATAZANAVIR\RITONAVIR [Interacting]
     Active Substance: ATAZANAVIR\RITONAVIR
     Indication: HIV infection
  4. TACROLIMUS [Interacting]
     Active Substance: TACROLIMUS
     Indication: Immunosuppressant drug therapy
     Dosage: 1.75 MILLIGRAM, BID (REDUCING THE TACROLIMUS DOSE BY NEARLY 57% OF THE ORIGINAL DOSE (1.75-1 MG BD))
     Route: 065
     Dates: end: 2025
  5. TACROLIMUS [Interacting]
     Active Substance: TACROLIMUS
     Dosage: 1 MILLIGRAM, BID (REDUCING THE TACROLIMUS DOSE BY NEARLY 57% OF THE ORIGINAL DOSE (1.75-1 MG BD))
     Route: 065
     Dates: start: 2025, end: 202505
  6. MYCOPHENOLIC ACID [Concomitant]
     Active Substance: MYCOPHENOLIC ACID
     Indication: Immunosuppressant drug therapy
     Dosage: UNK
     Route: 065
     Dates: end: 202505
  7. PREDNISOLONE [Concomitant]
     Active Substance: PREDNISOLONE
     Indication: Immunosuppressant drug therapy
     Dosage: UNK
     Route: 065
     Dates: end: 202505

REACTIONS (24)
  - Immunosuppressant drug level increased [Recovered/Resolved]
  - Blood creatinine increased [Recovered/Resolved]
  - Electrolyte imbalance [Recovered/Resolved]
  - Hyperglycaemia [Recovered/Resolved]
  - Drug interaction [Recovered/Resolved]
  - Toxicity to various agents [Recovered/Resolved]
  - Wrong product administered [Recovered/Resolved]
  - Gait disturbance [Recovered/Resolved]
  - Myalgia [Recovered/Resolved]
  - Dysphagia [Recovered/Resolved]
  - Asthenia [Recovered/Resolved]
  - Mental status changes [Recovered/Resolved]
  - Headache [Recovered/Resolved]
  - Decreased appetite [Recovered/Resolved]
  - Somnolence [Recovered/Resolved]
  - Mouth ulceration [Recovered/Resolved]
  - Arthralgia [Recovered/Resolved]
  - Nausea [Recovered/Resolved]
  - Confusional state [Recovered/Resolved]
  - Xerosis [Recovered/Resolved]
  - Weight decreased [Recovered/Resolved]
  - Abdominal distension [Recovered/Resolved]
  - Constipation [Recovered/Resolved]
  - Back pain [Recovered/Resolved]

NARRATIVE: CASE EVENT DATE: 20250501
